FAERS Safety Report 7044833-4 (Version None)
Quarter: 2010Q4

REPORT INFORMATION
  Report Type: 
  Country: None (occurrence: None)
  Receive Date: 20101014
  Receipt Date: 20101004
  Transmission Date: 20110411
  Serious: Yes (Death, Hospitalization)
  Sender: FDA-Public Use
  Company Number: DE-JNJFOC-20080905064

PATIENT
  Age: 70 Year
  Sex: Female
  Weight: 79 kg

DRUGS (6)
  1. DOXORUBICIN HCL [Suspect]
     Indication: BREAST CANCER METASTATIC
     Dosage: CYCLES 4-6
     Route: 042
  2. DOXORUBICIN HCL [Suspect]
     Dosage: CYCLES 7-14
     Route: 042
  3. DOXORUBICIN HCL [Suspect]
     Dosage: 93.0 MG, CYCLES 1-3
     Route: 042
  4. BONDRONAT [Concomitant]
     Indication: METASTASES TO BONE
     Route: 048
  5. METOHEXAL [Concomitant]
     Indication: HYPERTENSION
     Route: 048
  6. TAXOL [Concomitant]
     Indication: BREAST CANCER METASTATIC

REACTIONS (2)
  - BREAST CANCER METASTATIC [None]
  - VITH NERVE DISORDER [None]
